FAERS Safety Report 8378893-5 (Version None)
Quarter: 2012Q2

REPORT INFORMATION
  Report Type: 
  Country: None (occurrence: None)
  Receive Date: 20120522
  Receipt Date: 20120522
  Transmission Date: 20120825
  Serious: Yes (Hospitalization)
  Sender: FDA-Public Use
  Company Number: None

PATIENT
  Sex: Female

DRUGS (1)
  1. INCIVEK [Suspect]
     Indication: HEPATITIS C
     Dosage: 375 MG, TAKE 2 TABS TID ORAL
     Route: 048
     Dates: start: 20120201

REACTIONS (5)
  - VISION BLURRED [None]
  - PAIN [None]
  - HEADACHE [None]
  - RASH [None]
  - NAUSEA [None]
